FAERS Safety Report 22586147 (Version 1)
Quarter: 2023Q2

REPORT INFORMATION
  Report Type: Report from Study
  Country: CN (occurrence: CN)
  Receive Date: 20230610
  Receipt Date: 20230610
  Transmission Date: 20230721
  Serious: Yes (Other)
  Sender: FDA-Public Use
  Company Number: CN-SUN PHARMACEUTICAL INDUSTRIES LTD-2023R1-393968

PATIENT
  Age: 4 Year

DRUGS (5)
  1. ASPIRIN [Suspect]
     Active Substance: ASPIRIN
     Indication: Aneurysm
     Dosage: UNK
     Route: 048
  2. ALTEPLASE [Suspect]
     Active Substance: ALTEPLASE
     Indication: Aneurysm
     Dosage: 1.5 MG/KG
     Route: 042
  3. CLOPIDOGREL [Suspect]
     Active Substance: CLOPIDOGREL BISULFATE
     Indication: Aneurysm
     Dosage: 1 MG/KG. D
     Route: 065
  4. DIPYRIDAMOLE [Suspect]
     Active Substance: DIPYRIDAMOLE
     Indication: Aneurysm
     Dosage: UNK
     Route: 065
  5. Heperin [Concomitant]
     Indication: Aneurysm
     Dosage: 10U/KG
     Route: 042

REACTIONS (1)
  - Disease recurrence [Unknown]
